FAERS Safety Report 5821423-X (Version None)
Quarter: 2008Q3

REPORT INFORMATION
  Report Type: 
  Country: None (occurrence: None)
  Receive Date: 20080722
  Receipt Date: 20080722
  Transmission Date: 20090109
  Serious: Yes (Hospitalization)
  Sender: FDA-Public Use
  Company Number: None

PATIENT
  Age: 79 Year
  Sex: Female
  Weight: 55.6564 kg

DRUGS (13)
  1. VYTORIN [Suspect]
     Indication: HYPERLIPIDAEMIA
     Dosage: 1 TABLET QHS PO
     Route: 048
     Dates: start: 20080501, end: 20080721
  2. GLIPIZIDE [Concomitant]
  3. LISINOPRIL [Concomitant]
  4. DILTIAZEM HCL [Concomitant]
  5. HYDROCODONE BITARTRATE [Concomitant]
  6. BACLOFEN [Concomitant]
  7. MORPHINE [Concomitant]
  8. FUROSEMIDE [Concomitant]
  9. ESTROGENIC SUBSTANCE [Concomitant]
  10. MIRALAZ [Concomitant]
  11. FOSAMAX [Concomitant]
  12. CLOTRIMAZOLE [Concomitant]
  13. FERROUS FUMARATE [Concomitant]

REACTIONS (5)
  - ASTHENIA [None]
  - BODY TEMPERATURE INCREASED [None]
  - FALL [None]
  - MUSCULAR WEAKNESS [None]
  - URINARY TRACT INFECTION [None]
